FAERS Safety Report 22209369 (Version 1)
Quarter: 2023Q2

REPORT INFORMATION
  Report Type: Spontaneous
  Country: US (occurrence: US)
  Receive Date: 20230413
  Receipt Date: 20230413
  Transmission Date: 20230722
  Serious: No
  Sender: FDA-Public Use
  Company Number: US-JNJFOC-20230416165

PATIENT
  Age: 36 Year
  Sex: Female
  Weight: 56.750 kg

DRUGS (1)
  1. STELARA [Suspect]
     Active Substance: USTEKINUMAB
     Indication: Colitis ulcerative
     Route: 058
     Dates: start: 20221130

REACTIONS (7)
  - Hypersensitivity [Unknown]
  - Myalgia [Unknown]
  - Urticaria [Recovered/Resolved]
  - Chest pain [Unknown]
  - Pain in extremity [Unknown]
  - Pain in jaw [Unknown]
  - Off label use [Unknown]

NARRATIVE: CASE EVENT DATE: 20221130
